FAERS Safety Report 8879860 (Version 3)
Quarter: 2013Q1

REPORT INFORMATION
  Report Type: Spontaneous
  Country: US (occurrence: US)
  Receive Date: 20121101
  Receipt Date: 20130305
  Transmission Date: 20140127
  Serious: Yes (Hospitalization, Other)
  Sender: FDA-Public Use
  Company Number: US-BAYER-2012-113506

PATIENT
  Age: 20 Year
  Sex: Female
  Weight: 108.84 kg

DRUGS (9)
  1. YASMIN [Suspect]
     Dosage: UNK
     Dates: start: 200906, end: 200911
  2. LITHIUM CARBONATE [Concomitant]
     Dosage: 300 MG, UNK
  3. RISPERDAL [Concomitant]
     Dosage: 3 MG, UNK
  4. FLUOXETINE HCL [Concomitant]
     Dosage: 20 MG, UNK
  5. UNCODEABLE ^UNCLASSIFIABLE^ [Concomitant]
     Dosage: 10% OP (INTERPRETED AS OPHTHALMIC) SOL (SOLUTION)
  6. ACYCLOVIR [ACICLOVIR] [Concomitant]
     Dosage: 400 MG, UNK
  7. PROZAC [Concomitant]
  8. LITHIUM [Concomitant]
  9. TORADOL [Concomitant]

REACTIONS (9)
  - Deep vein thrombosis [None]
  - Deep vein thrombosis [None]
  - Thrombophlebitis superficial [None]
  - Injury [None]
  - Pain [None]
  - Emotional distress [None]
  - General physical health deterioration [None]
  - Anxiety [None]
  - Pain [None]
